FAERS Safety Report 23539480 (Version 1)
Quarter: 2024Q1

REPORT INFORMATION
  Report Type: Spontaneous
  Country: PT (occurrence: PT)
  Receive Date: 20240219
  Receipt Date: 20240219
  Transmission Date: 20240410
  Serious: Yes (Life-Threatening)
  Sender: FDA-Public Use
  Company Number: None

PATIENT
  Age: 44 Year
  Sex: Male

DRUGS (2)
  1. PACLITAXEL [Suspect]
     Active Substance: PACLITAXEL
     Indication: Tongue neoplasm malignant stage unspecified
     Dosage: FORM OF ADMIN: CONCENTRATE FOR SOLUTION FOR INFUSION
     Route: 042
     Dates: start: 20240130, end: 20240130
  2. PACLITAXEL [Suspect]
     Active Substance: PACLITAXEL
     Indication: Squamous cell carcinoma of skin

REACTIONS (9)
  - Vomiting [Recovering/Resolving]
  - Hypersensitivity [Recovering/Resolving]
  - Hyperhidrosis [Recovering/Resolving]
  - Pallor [Recovering/Resolving]
  - Nausea [Recovering/Resolving]
  - Oxygen saturation decreased [Recovering/Resolving]
  - Rash [Recovering/Resolving]
  - Bradycardia [Recovering/Resolving]
  - Hypotension [Recovering/Resolving]

NARRATIVE: CASE EVENT DATE: 20240130
